FAERS Safety Report 13844791 (Version 1)
Quarter: 2017Q3

REPORT INFORMATION
  Report Type: Spontaneous
  Country: US (occurrence: US)
  Receive Date: 20170808
  Receipt Date: 20170808
  Transmission Date: 20171127
  Serious: No
  Sender: FDA-Public Use
  Company Number: US-ASTRAZENECA-2017SE80684

PATIENT
  Age: 56 Year
  Sex: Female
  Weight: 67.1 kg

DRUGS (2)
  1. RHINOCORT ALLERGY [Suspect]
     Active Substance: BUDESONIDE
     Indication: MULTIPLE ALLERGIES
     Dosage: ONE SPRAY IN EACH NOSTRIL EVERY MORNING
     Route: 045
  2. RHINOCORT ALLERGY [Suspect]
     Active Substance: BUDESONIDE
     Indication: NASAL CONGESTION
     Dosage: ONE SPRAY IN EACH NOSTRIL EVERY MORNING
     Route: 045

REACTIONS (4)
  - Feeling abnormal [Recovered/Resolved]
  - Nasal discomfort [Recovered/Resolved]
  - Nasal dryness [Recovered/Resolved]
  - Nasal congestion [Recovered/Resolved]
